FAERS Safety Report 9940528 (Version 1)
Quarter: 2014Q1

REPORT INFORMATION
  Report Type: Spontaneous
  Country: FR (occurrence: FR)
  Receive Date: 20140303
  Receipt Date: 20140303
  Transmission Date: 20141002
  Serious: Yes (Hospitalization, Other)
  Sender: FDA-Public Use
  Company Number: FR-PFIZER INC-2014055608

PATIENT
  Age: 82 Year
  Sex: Male

DRUGS (1)
  1. LYRICA [Suspect]
     Indication: POLYNEUROPATHY
     Dosage: 150 MG, 2X/DAY

REACTIONS (5)
  - Urinary bladder haemorrhage [Unknown]
  - Hallucination [Unknown]
  - Aggression [Unknown]
  - Irritability [Unknown]
  - Incoherent [Unknown]
